FAERS Safety Report 6031107-3 (Version None)
Quarter: 2009Q1

REPORT INFORMATION
  Report Type: 
  Country: None (occurrence: None)
  Receive Date: 20090108
  Receipt Date: 20081227
  Transmission Date: 20090719
  Serious: Yes (Death)
  Sender: FDA-Public Use
  Company Number: FR-PFIZER INC-2008096634

PATIENT

DRUGS (3)
  1. SUTENT [Suspect]
     Indication: RENAL CANCER METASTATIC
     Dosage: 4 WEEKS/6
     Dates: start: 20080101
  2. ACEBUTOLOL HYDROCHLORIDE [Concomitant]
  3. URAPIDIL [Concomitant]

REACTIONS (1)
  - MYOCARDIAL INFARCTION [None]
